FAERS Safety Report 13903792 (Version 2)
Quarter: 2017Q4

REPORT INFORMATION
  Report Type: Spontaneous
  Country: JP (occurrence: JP)
  Receive Date: 20170824
  Receipt Date: 20171212
  Transmission Date: 20180320
  Serious: Yes (Death, Hospitalization, Other)
  Sender: FDA-Public Use
  Company Number: JP-GILEAD-2017-0288416

PATIENT
  Age: 52 Year
  Sex: Male

DRUGS (3)
  1. COPEGUS [Suspect]
     Active Substance: RIBAVIRIN
     Dosage: 400 MG, UNK
     Route: 048
     Dates: start: 20170728, end: 20170812
  2. SOVALDI [Suspect]
     Active Substance: SOFOSBUVIR
     Indication: CHRONIC HEPATITIS C
     Dosage: UNK
     Route: 048
     Dates: start: 20170629, end: 20170812
  3. COPEGUS [Suspect]
     Active Substance: RIBAVIRIN
     Indication: CHRONIC HEPATITIS C
     Dosage: 600 MG, UNK
     Route: 048
     Dates: start: 20170629, end: 20170727

REACTIONS (9)
  - Malaise [Unknown]
  - Pruritus [Unknown]
  - Blood bilirubin increased [Unknown]
  - Hepatic cancer [Fatal]
  - Ascites [Unknown]
  - Jaundice [Not Recovered/Not Resolved]
  - Anaemia [Unknown]
  - Hepatic failure [Fatal]
  - Hepatic function abnormal [Unknown]

NARRATIVE: CASE EVENT DATE: 20170728
